FAERS Safety Report 11907351 (Version 3)
Quarter: 2016Q1

REPORT INFORMATION
  Report Type: Report from Study
  Country: US (occurrence: US)
  Receive Date: 20160111
  Receipt Date: 20160203
  Transmission Date: 20160526
  Serious: No
  Sender: FDA-Public Use
  Company Number: PHEH2016US000634

PATIENT
  Age: 46 Year
  Sex: Female

DRUGS (2)
  1. OTEZLA [Concomitant]
     Active Substance: APREMILAST
     Indication: PRODUCT USED FOR UNKNOWN INDICATION
     Dosage: 30 MG, BID
     Route: 065
  2. COSENTYX [Suspect]
     Active Substance: SECUKINUMAB
     Indication: PRODUCT USED FOR UNKNOWN INDICATION
     Dosage: 300 MG, QMO
     Route: 058
     Dates: start: 20150915, end: 201512

REACTIONS (7)
  - Nasopharyngitis [Unknown]
  - Panic attack [Unknown]
  - Anxiety [Unknown]
  - Psoriatic arthropathy [Unknown]
  - Immune system disorder [Unknown]
  - Thermal burn [Unknown]
  - Psoriasis [Unknown]

NARRATIVE: CASE EVENT DATE: 20160104
